FAERS Safety Report 6724852-5 (Version None)
Quarter: 2010Q2

REPORT INFORMATION
  Report Type: 
  Country: None (occurrence: None)
  Receive Date: 20100513
  Receipt Date: 20100513
  Transmission Date: 20101027
  Serious: Yes (Other)
  Sender: FDA-Public Use
  Company Number: None

PATIENT
  Sex: Male
  Weight: 71 kg

DRUGS (2)
  1. LINEZOLID [Suspect]
     Indication: IMPAIRED HEALING
     Dosage: 600 MG Q12H ORAL
     Route: 048
     Dates: start: 20100430, end: 20100501
  2. LINEZOLID [Suspect]
     Indication: POSTOPERATIVE WOUND COMPLICATION
     Dosage: 600 MG Q12H ORAL
     Route: 048
     Dates: start: 20100430, end: 20100501

REACTIONS (2)
  - COMA [None]
  - RESPIRATORY RATE DECREASED [None]
